FAERS Safety Report 20753663 (Version 1)
Quarter: 2022Q2

REPORT INFORMATION
  Report Type: Spontaneous
  Country: US (occurrence: None)
  Receive Date: 20220426
  Receipt Date: 20220426
  Transmission Date: 20220721
  Serious: No
  Sender: FDA-Public Use
  Company Number: US-ROCHE-3028747

PATIENT
  Sex: Female

DRUGS (4)
  1. ESBRIET [Suspect]
     Active Substance: PIRFENIDONE
     Indication: Idiopathic pulmonary fibrosis
     Dosage: TAKE 1 CAP 3 TIMES DAILY FOR 1 WEEK, 2 CAP 3 TIMES DAILY FOR 1 WEEK, 3 CAP 3 TIMES DAILY WITH MEALS
     Route: 048
     Dates: start: 20220107
  2. ALBUTEROL [Concomitant]
     Active Substance: ALBUTEROL
  3. LORATADINE [Concomitant]
     Active Substance: LORATADINE
  4. PANTOPRAZOLE [Concomitant]
     Active Substance: PANTOPRAZOLE

REACTIONS (6)
  - Feeling cold [Recovered/Resolved]
  - Diarrhoea [Recovered/Resolved]
  - Rhinorrhoea [Recovered/Resolved]
  - Nausea [Recovered/Resolved]
  - Decreased appetite [Recovered/Resolved]
  - Malaise [Recovered/Resolved]
